FAERS Safety Report 6915066-4 (Version None)
Quarter: 2010Q3

REPORT INFORMATION
  Report Type: 
  Country: None (occurrence: None)
  Receive Date: 20100809
  Receipt Date: 20100726
  Transmission Date: 20110219
  Serious: Yes (Other)
  Sender: FDA-Public Use
  Company Number: GB-MYLANLABS-2010S1013434

PATIENT
  Age: 63 Year

DRUGS (6)
  1. FEXOFENADINE [Suspect]
     Indication: PRODUCT USED FOR UNKNOWN INDICATION
  2. ALLOPURINOL [Suspect]
     Indication: GOUT
     Route: 048
  3. ALFACALCIDOL [Concomitant]
     Indication: RENAL IMPAIRMENT
     Route: 048
  4. AMLODIPINE [Concomitant]
     Indication: HYPERTENSION
     Route: 048
  5. LISINOPRIL [Concomitant]
     Indication: HYPERTENSION
     Dosage: DOSE UNIT:30 UNKNOWN
  6. TEARS NATURALE /00134201/ [Concomitant]
     Indication: DRY EYE
     Dosage: DOSE UNIT: UNKNOWN

REACTIONS (4)
  - OEDEMA MOUTH [None]
  - ORAL PAIN [None]
  - RASH [None]
  - SWELLING FACE [None]
